FAERS Safety Report 10950125 (Version 1)
Quarter: 2015Q1

REPORT INFORMATION
  Report Type: Spontaneous
  Country: US (occurrence: US)
  Receive Date: 20150324
  Receipt Date: 20150324
  Transmission Date: 20150721
  Serious: No
  Sender: FDA-Public Use
  Company Number: US-ELI_LILLY_AND_COMPANY-US201502008606

PATIENT
  Age: 17 Year
  Sex: Male

DRUGS (10)
  1. CLARITIN [Concomitant]
     Active Substance: LORATADINE
     Dosage: UNK, PRN
     Route: 065
  2. SOMATROPIN [Suspect]
     Active Substance: SOMATROPIN
     Indication: BODY HEIGHT BELOW NORMAL
     Dosage: 2.8 MG, QD
     Route: 065
     Dates: start: 20150317
  3. TENEX [Concomitant]
     Active Substance: GUANFACINE HYDROCHLORIDE
     Dosage: 1 MG, BID
  4. HYDROXYZINE [Concomitant]
     Active Substance: HYDROXYZINE\HYDROXYZINE HYDROCHLORIDE
     Dosage: UNK, EACH EVENING
     Route: 065
  5. ZOLOFT [Concomitant]
     Active Substance: SERTRALINE HYDROCHLORIDE
     Dosage: 100 MG, UNKNOWN
     Route: 065
  6. ALBUTEROL                          /00139501/ [Concomitant]
     Active Substance: ALBUTEROL
     Dosage: UNK, UNKNOWN
     Route: 065
  7. MUCINEX [Concomitant]
     Active Substance: GUAIFENESIN
     Dosage: UNK, PRN
     Route: 065
  8. SOMATROPIN [Suspect]
     Active Substance: SOMATROPIN
     Indication: GROWTH HORMONE DEFICIENCY
  9. SYNTHROID [Concomitant]
     Active Substance: LEVOTHYROXINE SODIUM
     Dosage: 100 UG, UNKNOWN
     Route: 065
  10. MONOCYCLINE [Concomitant]
     Dosage: UNK, UNKNOWN
     Route: 065

REACTIONS (1)
  - Incorrect dose administered [Unknown]

NARRATIVE: CASE EVENT DATE: 20150317
